FAERS Safety Report 9970569 (Version 2)
Quarter: 2014Q1

REPORT INFORMATION
  Report Type: Report from Study
  Country: PR (occurrence: PR)
  Receive Date: 20140306
  Receipt Date: 20140306
  Transmission Date: 20141002
  Serious: No
  Sender: FDA-Public Use
  Company Number: PR-ABBVIE-12P-131-0919586-00

PATIENT
  Sex: Male
  Weight: 85.35 kg

DRUGS (9)
  1. HUMIRA [Suspect]
     Indication: RHEUMATOID ARTHRITIS
     Route: 058
     Dates: start: 2012
  2. ORPHENADRINE [Concomitant]
     Indication: PAIN
     Route: 048
  3. TRAMADOL [Concomitant]
     Indication: PAIN
     Route: 048
  4. AMBIEN [Concomitant]
     Indication: INSOMNIA
     Dosage: AT NIGHT
     Route: 048
  5. REMERON [Concomitant]
     Indication: INSOMNIA
     Dosage: 1 TABLET AT NIGHT
     Route: 048
  6. DIOVAN [Concomitant]
     Indication: HYPERTENSION
     Route: 048
  7. GOMBIGAN [Concomitant]
     Indication: GLAUCOMA
     Route: 047
  8. AZOPT [Concomitant]
     Indication: GLAUCOMA
     Route: 047
  9. COLLAGEN [Concomitant]
     Indication: SUPPLEMENTATION THERAPY
     Route: 048

REACTIONS (3)
  - Rhinorrhoea [Unknown]
  - Abdominal pain upper [Unknown]
  - Drug ineffective [Unknown]
